FAERS Safety Report 9020307 (Version 1)
Quarter: 2013Q1

REPORT INFORMATION
  Report Type: Spontaneous
  Country: US (occurrence: US)
  Receive Date: 20130119
  Receipt Date: 20130119
  Transmission Date: 20140127
  Serious: No
  Sender: FDA-Public Use
  Company Number: US-ALLERGAN-1209325US

PATIENT
  Sex: Female

DRUGS (3)
  1. BOTOX COSMETIC [Suspect]
     Indication: SKIN WRINKLING
     Dosage: 30 UNITS, SINGLE
     Route: 030
     Dates: start: 20120706, end: 20120706
  2. BOTOX COSMETIC [Suspect]
     Indication: SKIN WRINKLING
     Dosage: 30 UNITS, SINGLE
     Dates: start: 20110707, end: 20110707
  3. BOTOX COSMETIC [Suspect]
     Dosage: 30 UNITS, SINGLE
     Dates: start: 20091001, end: 20091001

REACTIONS (2)
  - Blepharospasm [Recovered/Resolved]
  - Diplopia [Recovered/Resolved]
